FAERS Safety Report 5324483-8 (Version None)
Quarter: 2007Q2

REPORT INFORMATION
  Report Type: 
  Country: None (occurrence: None)
  Receive Date: 20070508
  Receipt Date: 20070419
  Transmission Date: 20071010
  Serious: Yes (Death, Life-Threatening, Hospitalization)
  Sender: FDA-Public Use
  Company Number: 2007US000285

PATIENT
  Age: 16 Month
  Sex: Male

DRUGS (28)
  1. AMBISOME [Suspect]
     Indication: SYSTEMIC MYCOSIS
     Dosage: SEE IMAGE
     Route: 041
     Dates: start: 20070110, end: 20070110
  2. AMBISOME [Suspect]
     Indication: SYSTEMIC MYCOSIS
     Dosage: SEE IMAGE
     Route: 041
     Dates: start: 20070111, end: 20070116
  3. PROGRAF [Concomitant]
  4. SOLITA-T1 (GLUCOSE, SODIUM LACTATE, SODIUM CHLORIDE) [Concomitant]
  5. HEPARIN [Concomitant]
  6. NICARDIPINE HYDROCHLORIDE [Concomitant]
  7. SOLU-MEDROL [Concomitant]
  8. ZOVIRAX [Concomitant]
  9. CONIEL (BENIDIPINE HYDROCHLORIDE) [Concomitant]
  10. ENALAPRIL MALEATE [Concomitant]
  11. GASTER D [Concomitant]
  12. SULFAMETHOXAZOLE + TRIMETHOPRIM [Concomitant]
  13. ALBUMIN (HUMAN) [Concomitant]
  14. LASIX [Concomitant]
  15. RED BLOOD CELLS [Concomitant]
  16. SODIUM CHLORIDE 0.9% [Concomitant]
  17. ELEMENMIC (MINERALS NOS) [Concomitant]
  18. CEFTAZIDIME [Concomitant]
  19. HUMULIN R [Concomitant]
  20. SOLITA-T3 (SODIUM LACTATE, SODIUM CHLORIDE, POTASSIUM CHLORIDE) [Concomitant]
  21. SOSEGON (PENTAZOCINE) [Concomitant]
  22. MIDAZOLAM HYDROCHLORIDE [Concomitant]
  23. VECURONIUM BROMIDE [Concomitant]
  24. PLATELETS [Concomitant]
  25. VFEND [Concomitant]
  26. SOLITA-T 3G (SODIUM LACTATE, SODIUM CHLORIDE, CARBOHYDRATES NOS, POTAS [Concomitant]
  27. GLUCOSE (GLUCOSE) [Concomitant]
  28. TARGOCID [Concomitant]

REACTIONS (21)
  - ALANINE AMINOTRANSFERASE INCREASED [None]
  - ASPARTATE AMINOTRANSFERASE INCREASED [None]
  - BLOOD AMYLASE INCREASED [None]
  - BLOOD GLUCOSE INCREASED [None]
  - BLOOD LACTATE DEHYDROGENASE INCREASED [None]
  - BLOOD UREA INCREASED [None]
  - BLOOD URIC ACID INCREASED [None]
  - BLOOD URINE PRESENT [None]
  - C-REACTIVE PROTEIN INCREASED [None]
  - MYELOCYTE COUNT INCREASED [None]
  - MYELOCYTE PRESENT [None]
  - OCCULT BLOOD POSITIVE [None]
  - OEDEMA PERIPHERAL [None]
  - OLIGURIA [None]
  - PLATELET COUNT DECREASED [None]
  - PULMONARY HAEMORRHAGE [None]
  - RESPIRATORY FAILURE [None]
  - RHINORRHOEA [None]
  - STAPHYLOCOCCAL INFECTION [None]
  - VOMITING [None]
  - WHITE BLOOD CELL COUNT INCREASED [None]
